FAERS Safety Report 21309629 (Version 1)
Quarter: 2022Q3

REPORT INFORMATION
  Report Type: Spontaneous
  Country: CH (occurrence: CH)
  Receive Date: 20220908
  Receipt Date: 20220908
  Transmission Date: 20221027
  Serious: Yes (Hospitalization, Other)
  Sender: FDA-Public Use
  Company Number: CH-CDSU_IT-CH-MEN-083743

PATIENT
  Age: 81 Year
  Sex: Male

DRUGS (14)
  1. RANEXA [Suspect]
     Active Substance: RANOLAZINE
     Indication: Myocardial ischaemia
     Dosage: UNK
     Route: 048
  2. RANEXA [Suspect]
     Active Substance: RANOLAZINE
     Indication: Cardiac valve disease
  3. RANEXA [Suspect]
     Active Substance: RANOLAZINE
     Indication: Arrhythmia
  4. AMLODIPINE [Suspect]
     Active Substance: AMLODIPINE BESYLATE
     Indication: Hypertension
     Dosage: 5 MG, QD
     Route: 048
  5. BISOPROLOL FUMARATE [Suspect]
     Active Substance: BISOPROLOL FUMARATE
     Indication: Myocardial ischaemia
     Dosage: 1.25 MG, QD
     Route: 048
  6. BISOPROLOL FUMARATE [Suspect]
     Active Substance: BISOPROLOL FUMARATE
     Indication: Cardiac valve disease
  7. BISOPROLOL FUMARATE [Suspect]
     Active Substance: BISOPROLOL FUMARATE
     Indication: Arrhythmia
  8. PAROXETINE [Suspect]
     Active Substance: PAROXETINE
     Indication: Sleep disorder
     Dosage: 20 MG, QD
     Route: 048
  9. ZOLPIDEM [Suspect]
     Active Substance: ZOLPIDEM TARTRATE
     Indication: Depression
     Dosage: 10 MG, QD
     Route: 048
  10. XANAX [Suspect]
     Active Substance: ALPRAZOLAM
     Indication: Anxiety
     Dosage: 0.25 MG, QD
     Route: 048
  11. SINTROM [Concomitant]
     Active Substance: ACENOCOUMAROL
     Indication: Myocardial ischaemia
     Dosage: DOSE TO BE ADJUSTED ACCORDING TO INR (AS NECESSARY)
     Route: 048
  12. SINTROM [Concomitant]
     Active Substance: ACENOCOUMAROL
     Indication: Cardiac valve disease
  13. SINTROM [Concomitant]
     Active Substance: ACENOCOUMAROL
     Indication: Arrhythmia
  14. ALOPUR [Concomitant]
     Indication: Hyperuricaemia
     Dosage: UNK
     Route: 048

REACTIONS (9)
  - Vascular dementia [Not Recovered/Not Resolved]
  - Acute kidney injury [Recovered/Resolved]
  - Confusional state [Not Recovered/Not Resolved]
  - Fall [Recovered/Resolved]
  - Orthostatic hypotension [Not Recovered/Not Resolved]
  - Vitamin D deficiency [Unknown]
  - Pyrexia [Recovered/Resolved]
  - Drug interaction [Not Recovered/Not Resolved]
  - Off label use [Not Recovered/Not Resolved]

NARRATIVE: CASE EVENT DATE: 20220601
